FAERS Safety Report 4783008-6 (Version None)
Quarter: 2005Q3

REPORT INFORMATION
  Report Type: 
  Country: None (occurrence: None)
  Receive Date: 20050928
  Receipt Date: 20050928
  Transmission Date: 20060218
  Serious: Yes (Other)
  Sender: FDA-Public Use
  Company Number: None

PATIENT
  Age: 70 Year
  Sex: Male
  Weight: 106.5953 kg

DRUGS (15)
  1. ZETIA [Suspect]
     Indication: HYPERLIPIDAEMIA
     Dosage: 5MG DAILY PO
     Route: 049
     Dates: start: 20050425, end: 20050630
  2. ACETAMINOPHEN [Concomitant]
  3. BACITRACIN [Concomitant]
  4. CANDESARTAN CILEXETIL [Concomitant]
  5. CLONIDINE HCL [Concomitant]
  6. COLCHICINE [Concomitant]
  7. DOCUSATE NA [Concomitant]
  8. GLYBURIDE [Concomitant]
  9. HYDROCODONE 5/ACETAMINOPHEN [Concomitant]
  10. LISINOPRIL [Concomitant]
  11. NORTRIPTYLINE HCL [Concomitant]
  12. SILDENAFIL CITRATE [Concomitant]
  13. SOTALOL HCL [Concomitant]
  14. TERAZOSIN HCL [Concomitant]
  15. . [Concomitant]

REACTIONS (5)
  - ASTHENIA [None]
  - DEPRESSED MOOD [None]
  - MUSCLE SPASMS [None]
  - MYALGIA [None]
  - SOMNOLENCE [None]
